FAERS Safety Report 7533018-0 (Version None)
Quarter: 2011Q2

REPORT INFORMATION
  Report Type: 
  Country: None (occurrence: None)
  Receive Date: 20110608
  Receipt Date: 20110606
  Transmission Date: 20111010
  Serious: Yes (Other)
  Sender: FDA-Public Use
  Company Number: US-PFIZER INC-2011122765

PATIENT
  Sex: Male
  Weight: 97.506 kg

DRUGS (3)
  1. ADVIL LIQUI-GELS [Concomitant]
     Indication: PAIN
     Dosage: UNK
  2. ADVIL LIQUI-GELS [Concomitant]
     Indication: INFLAMMATION
  3. EFFEXOR XR [Suspect]
     Indication: DEPRESSION
     Dosage: 150 MG, 1X/DAY
     Route: 048
     Dates: start: 20060101

REACTIONS (4)
  - BLOOD CHOLESTEROL INCREASED [None]
  - STAPHYLOCOCCAL INFECTION [None]
  - LOW DENSITY LIPOPROTEIN INCREASED [None]
  - ELECTROCARDIOGRAM QT INTERVAL ABNORMAL [None]
